FAERS Safety Report 9654455 (Version 1)
Quarter: 2013Q4

REPORT INFORMATION
  Report Type: Spontaneous
  Country: US (occurrence: US)
  Receive Date: 20131029
  Receipt Date: 20131029
  Transmission Date: 20140711
  Serious: Yes (Other)
  Sender: FDA-Public Use
  Company Number: CHPA2013US016312

PATIENT
  Age: 36 Year
  Sex: Female

DRUGS (10)
  1. TRANSDERM SCOP [Suspect]
     Indication: MOTION SICKNESS
     Dosage: 1 DF EVERY 3 DAYS, PRN
     Route: 062
     Dates: end: 201306
  2. TRANSDERM SCOP [Suspect]
     Dosage: 1 DF, EVERY 3 DAYS
     Route: 062
     Dates: start: 201306
  3. NOVOLOG [Concomitant]
     Indication: DIABETES MELLITUS
     Dosage: UNK, UNK
  4. ZYRTEC [Concomitant]
     Indication: HYPERSENSITIVITY
     Dosage: 10 MG, QD
  5. PEPCID [Concomitant]
     Indication: GASTROOESOPHAGEAL REFLUX DISEASE
     Dosage: 20 MG, QD
  6. SYNTHROID [Concomitant]
     Dosage: UNK, UNK
  7. CYTOMEL [Concomitant]
     Dosage: UNK, UNK
  8. VENTOLIN                           /00942701/ [Concomitant]
     Dosage: UNK, UNK
  9. PRILOSEC [Concomitant]
     Indication: GASTROOESOPHAGEAL REFLUX DISEASE
     Dosage: UNK, UNK
     Dates: end: 201310
  10. SINGULAIR [Concomitant]
     Indication: ASTHMA
     Dosage: 10 MG, QD
     Dates: start: 2009

REACTIONS (6)
  - Sleep disorder [Not Recovered/Not Resolved]
  - Depression [Not Recovered/Not Resolved]
  - Myalgia [Not Recovered/Not Resolved]
  - Nausea [Not Recovered/Not Resolved]
  - Gastrointestinal motility disorder [Not Recovered/Not Resolved]
  - Incorrect dose administered [Unknown]
